FAERS Safety Report 14914393 (Version 3)
Quarter: 2021Q4

REPORT INFORMATION
  Report Type: Report from Study
  Country: US (occurrence: US)
  Receive Date: 20180518
  Receipt Date: 20211102
  Transmission Date: 20220303
  Serious: Yes (Other)
  Sender: FDA-Public Use
  Company Number: US-JAZZ-2018-US-003623

PATIENT
  Sex: Female
  Weight: 50.34 kg

DRUGS (2)
  1. XYREM [Suspect]
     Active Substance: SODIUM OXYBATE
     Indication: Narcolepsy
     Dosage: 2.25 G, BID
     Route: 048
     Dates: start: 201802, end: 201802
  2. XYREM [Suspect]
     Active Substance: SODIUM OXYBATE
     Dosage: 3 G, BID
     Route: 048
     Dates: start: 201802

REACTIONS (7)
  - Weight decreased [Recovering/Resolving]
  - Hyperaesthesia teeth [Unknown]
  - Cough [Unknown]
  - Abdominal pain upper [Unknown]
  - Dry mouth [Unknown]
  - Decreased appetite [Recovering/Resolving]
  - Diarrhoea [Unknown]
